FAERS Safety Report 25856604 (Version 2)
Quarter: 2025Q3

REPORT INFORMATION
  Report Type: Spontaneous
  Country: GB (occurrence: GB)
  Receive Date: 20250929
  Receipt Date: 20250930
  Transmission Date: 20251020
  Serious: Yes (Other)
  Sender: TEVA
  Company Number: GB-MHRA-37048027

PATIENT
  Sex: Male

DRUGS (1)
  1. NAPROXEN [Suspect]
     Active Substance: NAPROXEN
     Indication: Product used for unknown indication
     Route: 065
     Dates: start: 20250701, end: 20250905

REACTIONS (5)
  - Musculoskeletal stiffness [Unknown]
  - Abdominal pain upper [Unknown]
  - Visual impairment [Unknown]
  - Headache [Unknown]
  - Pruritus [Unknown]
